FAERS Safety Report 25338727 (Version 2)
Quarter: 2025Q2

REPORT INFORMATION
  Report Type: Report from Study
  Country: US (occurrence: US)
  Receive Date: 20250520
  Receipt Date: 20250624
  Transmission Date: 20250716
  Serious: No
  Sender: MALLINCKRODT
  Company Number: US-MALLINCKRODT-MNK202500876

PATIENT
  Sex: Female

DRUGS (7)
  1. CORTICOTROPIN [Suspect]
     Active Substance: CORTICOTROPIN
     Indication: Systemic lupus erythematosus
  2. CORTICOTROPIN [Suspect]
     Active Substance: CORTICOTROPIN
     Indication: Inflammation
     Dosage: UNKNOWN
  3. OZEMPIC [Concomitant]
     Active Substance: SEMAGLUTIDE
  4. LEXAPRO [Concomitant]
     Active Substance: ESCITALOPRAM OXALATE
  5. DIETHYLSTILBESTROL [Concomitant]
     Active Substance: DIETHYLSTILBESTROL
  6. PROGESTERONE [Concomitant]
     Active Substance: PROGESTERONE
  7. VITAMIN D3 [Concomitant]
     Active Substance: CHOLECALCIFEROL

REACTIONS (6)
  - Weight decreased [Unknown]
  - Pain [Unknown]
  - Injection site haemorrhage [Unknown]
  - Injection site erythema [Unknown]
  - Injection site bruising [Unknown]
  - Injection site rash [Unknown]
